FAERS Safety Report 5503602-4 (Version None)
Quarter: 2007Q4

REPORT INFORMATION
  Report Type: 
  Country: None (occurrence: None)
  Receive Date: 20071029
  Receipt Date: 20071025
  Transmission Date: 20080405
  Serious: Yes (Death)
  Sender: FDA-Public Use
  Company Number: 2007-03549

PATIENT
  Age: 63 Year
  Sex: Male
  Weight: 92 kg

DRUGS (8)
  1. VELCADE [Suspect]
     Indication: MULTIPLE MYELOMA
     Dosage: 2.70 MG, INTRAVENOUS
     Route: 042
     Dates: start: 20071009, end: 20071019
  2. DOXORUBICIN HCL [Suspect]
     Indication: MULTIPLE MYELOMA
     Dosage: 13.00 MG, INTRAVENOUS
     Route: 042
     Dates: start: 20071009, end: 20071012
  3. DEXAMETHASONE [Suspect]
     Indication: MULTIPLE MYELOMA
     Dosage: 40.00 MG, ORAL
     Route: 048
     Dates: start: 20071009, end: 20071020
  4. HYDROCHLOROTHIAZIDE [Concomitant]
  5. SIMVASTATIN [Concomitant]
  6. METFORMIN HCL [Concomitant]
  7. GLIMEPIRIDE [Concomitant]
  8. VALACYCLOVIR [Concomitant]

REACTIONS (4)
  - CONSTIPATION [None]
  - HYPERGLYCAEMIA [None]
  - HYPONATRAEMIA [None]
  - VIRAL MYOCARDITIS [None]
